FAERS Safety Report 23743660 (Version 3)
Quarter: 2024Q4

REPORT INFORMATION
  Report Type: Report from Study
  Country: US (occurrence: US)
  Receive Date: 20240415
  Receipt Date: 20241028
  Transmission Date: 20250115
  Serious: Yes (Hospitalization)
  Sender: SANDOZ
  Company Number: US-002147023-NVSC2020US308113

PATIENT
  Sex: Female
  Weight: 81.633 kg

DRUGS (11)
  1. TREPROSTINIL [Suspect]
     Active Substance: TREPROSTINIL
     Dosage: UNK UNK, CONT, 78 NG/KG/MIN
     Route: 042
  2. TREPROSTINIL [Suspect]
     Active Substance: TREPROSTINIL
     Indication: Pulmonary arterial hypertension
     Dosage: UNK UNK, CONT (20NG/KG/MIN)
     Route: 042
     Dates: start: 20190715
  3. TREPROSTINIL [Suspect]
     Active Substance: TREPROSTINIL
     Dosage: UNK UNK, CONT (20NG/KG/MIN)
     Route: 042
     Dates: start: 20201111
  4. TREPROSTINIL [Suspect]
     Active Substance: TREPROSTINIL
     Dosage: UNK(28.8 NG/KG/MIN)
     Route: 042
     Dates: start: 20201111
  5. IBUPROFEN IB [Concomitant]
     Active Substance: IBUPROFEN
     Indication: Product used for unknown indication
     Dosage: UNK
     Route: 065
  6. LETAIRIS [Concomitant]
     Active Substance: AMBRISENTAN
     Indication: Product used for unknown indication
     Dosage: UNK
     Route: 065
  7. ORTHO-CEPT [Concomitant]
     Active Substance: DESOGESTREL\ETHINYL ESTRADIOL
     Indication: Product used for unknown indication
     Dosage: UNK
     Route: 065
  8. REMODULIN [Concomitant]
     Active Substance: TREPROSTINIL
     Indication: Product used for unknown indication
     Dosage: UNK
     Route: 065
  9. SILDENAFIL CITRATE [Concomitant]
     Active Substance: SILDENAFIL CITRATE
     Indication: Product used for unknown indication
     Dosage: UNK
     Route: 065
  10. TADALAFIL [Concomitant]
     Active Substance: TADALAFIL
     Indication: Product used for unknown indication
     Dosage: UNK
     Route: 065
  11. WARFARIN SODIUM [Concomitant]
     Active Substance: WARFARIN SODIUM
     Indication: Product used for unknown indication
     Dosage: UNK
     Route: 065

REACTIONS (17)
  - Hospitalisation [Unknown]
  - Catheter site discolouration [Unknown]
  - Catheter site discharge [Unknown]
  - Dyspnoea [Unknown]
  - Back pain [Unknown]
  - Fluid retention [Unknown]
  - Infusion site pruritus [Unknown]
  - Depression [Unknown]
  - Dermatitis contact [Unknown]
  - Fatigue [Unknown]
  - Headache [Unknown]
  - Infusion site rash [Unknown]
  - Erythema [Unknown]
  - Infusion site erythema [Unknown]
  - Central venous catheterisation [Unknown]
  - Rash pruritic [Unknown]
  - Product use issue [Unknown]
